FAERS Safety Report 10657488 (Version 4)
Quarter: 2018Q4

REPORT INFORMATION
  Report Type: Spontaneous
  Country: US (occurrence: US)
  Receive Date: 20141217
  Receipt Date: 20181217
  Transmission Date: 20190204
  Serious: No
  Sender: FDA-Public Use
  Company Number: US-PFIZER INC-2014340851

PATIENT
  Sex: Female

DRUGS (6)
  1. INNOVAR [Suspect]
     Active Substance: DROPERIDOL\FENTANYL CITRATE
     Dosage: UNK
  2. FLAGYL [Suspect]
     Active Substance: METRONIDAZOLE\METRONIDAZOLE HYDROCHLORIDE
     Dosage: UNK
  3. PEREBRON [Suspect]
     Active Substance: OXOLAMINE
     Dosage: UNK
  4. ATROPINE SULFATE. [Suspect]
     Active Substance: ATROPINE SULFATE
     Dosage: UNK
  5. AMOPINE [Suspect]
     Active Substance: AMLODIPINE BESYLATE
     Dosage: UNK
  6. PERCODAN [Suspect]
     Active Substance: ASPIRIN\OXYCODONE HYDROCHLORIDE
     Dosage: UNK

REACTIONS (1)
  - Drug hypersensitivity [Unknown]
